FAERS Safety Report 6055282-X (Version None)
Quarter: 2009Q1

REPORT INFORMATION
  Report Type: 
  Country: None (occurrence: None)
  Receive Date: 20090122
  Receipt Date: 20090109
  Transmission Date: 20090719
  Serious: Yes (Other)
  Sender: FDA-Public Use
  Company Number: CIP07001816

PATIENT
  Sex: Female

DRUGS (14)
  1. ACTONEL [Suspect]
     Indication: OSTEOPENIA
     Dosage: 35 MG, 1 /WEEK, ORAL
     Route: 048
     Dates: start: 20030927, end: 20060501
  2. ACTONEL [Suspect]
     Indication: OSTEOPENIA
     Dosage: 5 MG, DAILY, ORAL
     Route: 048
     Dates: start: 20010130, end: 20020927
  3. FOSAMAX [Suspect]
  4. GLUCOSAMINE + CHONDROITIN (CHONDROITIN SULFATE, GLUCOSAMINE) [Concomitant]
  5. TYLENOL NO.2 (CAFFEINE, CODEINE PHOSPHATE, PARACETAMOL) [Concomitant]
  6. NASACORT AQ [Concomitant]
  7. TRAVATAN [Concomitant]
  8. LEVOXYL [Concomitant]
  9. LEXAPRO [Concomitant]
  10. TRAZODONE HCL [Concomitant]
  11. ZOCOR [Concomitant]
  12. PROMETHAZINE [Concomitant]
  13. CALTRATE + D /00944201/ (CALCIUM CARBONATE, COLECALCIFEROL) [Concomitant]
  14. IBUPROFEN TABLETS [Concomitant]

REACTIONS (14)
  - BONE DISORDER [None]
  - CHRONIC SINUSITIS [None]
  - EXOSTOSIS [None]
  - HYPOAESTHESIA ORAL [None]
  - NECROSIS [None]
  - ORAL CAVITY FISTULA [None]
  - OROANTRAL FISTULA [None]
  - OSTEONECROSIS [None]
  - PALATAL DISORDER [None]
  - PERIODONTAL DISEASE [None]
  - POST PROCEDURAL COMPLICATION [None]
  - TOOTH EXTRACTION [None]
  - TOOTH LOSS [None]
  - WOUND DEHISCENCE [None]
